FAERS Safety Report 4944554-5 (Version None)
Quarter: 2006Q1

REPORT INFORMATION
  Report Type: 
  Country: None (occurrence: None)
  Receive Date: 20060315
  Receipt Date: 20060207
  Transmission Date: 20060701
  Serious: Yes (Other)
  Sender: FDA-Public Use
  Company Number: PHRM2006FR00750

PATIENT
  Age: 60 Year
  Sex: Female

DRUGS (6)
  1. ZOMETA [Suspect]
     Indication: METASTASES TO BONE
     Dosage: 4 MG, QMO
     Route: 042
     Dates: start: 20040701, end: 20050929
  2. SU 11248 [Concomitant]
     Indication: METASTASES TO BONE
     Dates: start: 20050316
  3. ZALDIAR [Concomitant]
     Indication: BACK PAIN
     Dates: start: 20050603, end: 20051225
  4. FORLAX [Concomitant]
     Dosage: UNK, PRN
  5. PRIMPERAN TAB [Concomitant]
     Dosage: UNK, PRN
  6. DEBRIDAT [Concomitant]
     Dosage: UNK, PRN

REACTIONS (2)
  - OSTEONECROSIS [None]
  - PAIN IN JAW [None]
